FAERS Safety Report 8733672 (Version 3)
Quarter: 2013Q1

REPORT INFORMATION
  Report Type: Spontaneous
  Country: US (occurrence: None)
  Receive Date: 20120802
  Receipt Date: 20121221
  Transmission Date: 20140127
  Serious: Yes (Other)
  Sender: FDA-Public Use
  Company Number: 1206-287

PATIENT
  Age: 83 Year
  Sex: Male

DRUGS (10)
  1. EYLEA [Suspect]
     Indication: MACULAR DEGENERATION
     Dosage: 2 MG
     Dates: start: 20120411, end: 20120523
  2. ASPIRIN (ACETYLSALICYLIC ACID) [Concomitant]
  3. LISINOPRIL (LISINOPRIL) [Concomitant]
  4. HYDROCHLOROTHIAZIDE (HYDROCHLOROTHIAZIDE) [Concomitant]
  5. METOPROLOL TARTRATE [Concomitant]
  6. TRAZODONE HYDROCHLORIDE [Concomitant]
  7. FLUORIDE (SODIUM FLUORIDE) [Concomitant]
  8. COSOPT (COSOPT) (DROPS) [Concomitant]
  9. LATANOPROST (LATANOPROST) (DROPS) [Concomitant]
  10. AMLODIPINE [Concomitant]

REACTIONS (3)
  - Eye inflammation [None]
  - Visual acuity reduced [None]
  - Endophthalmitis [None]
